FAERS Safety Report 8658583 (Version 3)
Quarter: 2012Q4

REPORT INFORMATION
  Report Type: 
  Country: JP (occurrence: JP)
  Receive Date: 20120710
  Receipt Date: 20120919
  Transmission Date: 20130627
  Serious: Yes (Hospitalization)
  Sender: FDA-Public Use
  Company Number: PHHY2012JP058113

PATIENT
  Age: 57 Year
  Sex: Female
  Weight: 47 kg

DRUGS (9)
  1. TASIGNA [Suspect]
     Indication: CHRONIC MYELOID LEUKAEMIA
     Dosage: 600 mg, daily
     Route: 048
     Dates: start: 20120110, end: 20120212
  2. TASIGNA [Suspect]
     Dosage: 300 mg, daily
     Route: 048
     Dates: start: 20120221, end: 20120405
  3. TASIGNA [Suspect]
     Dosage: 150 mg, daily
     Route: 048
     Dates: start: 20120425, end: 20120515
  4. CALONAL [Concomitant]
     Indication: PYREXIA
     Dosage: 1200 mg, daily
     Route: 048
     Dates: start: 20120522, end: 20120612
  5. PREDONINE [Concomitant]
     Dosage: 20 mg, UNK
     Dates: start: 20120423
  6. PREDONINE [Concomitant]
     Dosage: 15 mg, UNK
     Route: 048
  7. BAKTAR [Concomitant]
     Indication: INFECTION PROPHYLAXIS
     Dosage: 1 DF, UNK
     Route: 048
     Dates: start: 20120301, end: 20120625
  8. OMEPRAZOLE [Concomitant]
     Dosage: 20 mg, UNK
     Route: 048
     Dates: start: 20120212
  9. ALLELOCK [Concomitant]
     Indication: RASH
     Dosage: 10 mg, UNK
     Route: 048

REACTIONS (8)
  - Renal disorder [Recovering/Resolving]
  - Blood creatinine increased [Recovering/Resolving]
  - Rash [Recovering/Resolving]
  - Hyperkeratosis [Not Recovered/Not Resolved]
  - Pyrexia [Unknown]
  - Dry mouth [Not Recovered/Not Resolved]
  - Dysgeusia [Not Recovered/Not Resolved]
  - Oedema peripheral [Unknown]
